FAERS Safety Report 10611607 (Version 1)
Quarter: 2014Q4

REPORT INFORMATION
  Report Type: Other
  Country: FR (occurrence: FR)
  Receive Date: 20141126
  Receipt Date: 20141126
  Transmission Date: 20150529
  Serious: Yes (Hospitalization)
  Sender: FDA-Public Use
  Company Number: FR-ARIAD PHARMACEUTICALS, INC-2014FR004086

PATIENT

DRUGS (1)
  1. ICLUSIG [Suspect]
     Active Substance: PONATINIB
     Indication: ACUTE LYMPHOCYTIC LEUKAEMIA
     Dosage: 45 MG, QD
     Route: 048
     Dates: start: 201407, end: 20141028

REACTIONS (9)
  - Urinary incontinence [Unknown]
  - Tinnitus [Unknown]
  - Fall [Unknown]
  - Movement disorder [Unknown]
  - Postictal state [Unknown]
  - Headache [Unknown]
  - Cerebrovascular accident [Recovered/Resolved]
  - Feeling hot [Unknown]
  - Loss of consciousness [Unknown]

NARRATIVE: CASE EVENT DATE: 201409
